FAERS Safety Report 5735447-4 (Version None)
Quarter: 2008Q2

REPORT INFORMATION
  Report Type: 
  Country: None (occurrence: None)
  Receive Date: 20080512
  Receipt Date: 20080505
  Transmission Date: 20081010
  Serious: No
  Sender: FDA-Public Use
  Company Number: US-BAXTER-2008BH004646

PATIENT
  Sex: Female

DRUGS (1)
  1. HEPARIN SODIUM [Suspect]
     Indication: PROPHYLAXIS
     Dosage: DOSE UNIT:UNKNOWN
     Route: 033

REACTIONS (22)
  - ABDOMINAL PAIN [None]
  - ASTHENIA [None]
  - BURNING SENSATION [None]
  - DRY THROAT [None]
  - DYSKINESIA [None]
  - GASTRIC INFECTION [None]
  - HEADACHE [None]
  - HEART RATE INCREASED [None]
  - HYPERHIDROSIS [None]
  - LACRIMATION INCREASED [None]
  - MALAISE [None]
  - MASTICATION DISORDER [None]
  - NAUSEA [None]
  - PALLOR [None]
  - PARAESTHESIA ORAL [None]
  - PRURITUS [None]
  - RASH [None]
  - RESTLESSNESS [None]
  - SENSORY DISTURBANCE [None]
  - STOMACH DISCOMFORT [None]
  - THIRST [None]
  - VOMITING [None]
